FAERS Safety Report 4490679-0 (Version None)
Quarter: 2004Q4

REPORT INFORMATION
  Report Type: 
  Country: None (occurrence: None)
  Receive Date: 20041102
  Receipt Date: 20041029
  Transmission Date: 20050328
  Serious: Yes (Other)
  Sender: FDA-Public Use
  Company Number: US-GLAXOSMITHKLINE-A0531864A

PATIENT
  Age: 84 Year
  Sex: Male

DRUGS (24)
  1. ADVAIR [Suspect]
     Indication: BRONCHITIS ACUTE
     Dosage: 1PUFF TWICE PER DAY
     Route: 055
     Dates: start: 20040401
  2. XOPENEX [Concomitant]
  3. IPRATROPIUM BROMIDE [Concomitant]
  4. GLUCOTROL XL [Concomitant]
  5. TUSSIONEX [Concomitant]
  6. DEMADEX [Concomitant]
  7. KLOR-CON [Concomitant]
  8. VALIUM [Concomitant]
  9. HYDROCHLOROTHIAZIDE SPIRONOLACTONE [Concomitant]
  10. TERAZOSIN HCL [Concomitant]
  11. TOPROL-XL [Concomitant]
  12. HYDROCHLOROTHIAZIDE [Concomitant]
  13. NORVASC [Concomitant]
  14. AMBIEN [Concomitant]
  15. MAG-OX [Concomitant]
  16. GLUCOSAMINE CHONDROITIN [Concomitant]
  17. MULTI-VITAMIN [Concomitant]
  18. POTASSIUM [Concomitant]
  19. VIT E [Concomitant]
  20. FISH OIL [Concomitant]
  21. ZINC [Concomitant]
  22. VITAMIN B COMPLEX + VITAMIN C [Concomitant]
  23. STOOL SOFTENER [Concomitant]
  24. LAXATIVE [Concomitant]

REACTIONS (3)
  - COUGH [None]
  - PULMONARY OEDEMA [None]
  - STOMATITIS [None]
